FAERS Safety Report 5750485-3 (Version None)
Quarter: 2008Q2

REPORT INFORMATION
  Report Type: 
  Country: None (occurrence: None)
  Receive Date: 20080528
  Receipt Date: 20070831
  Transmission Date: 20081010
  Serious: No
  Sender: FDA-Public Use
  Company Number: US-KINGPHARMUSA00001-K200701133

PATIENT

DRUGS (2)
  1. AVINZA [Suspect]
     Indication: PAIN
     Dosage: 120 MG, QD
     Route: 048
     Dates: start: 20070801, end: 20070801
  2. NAPROSYN [Concomitant]

REACTIONS (4)
  - DYSPNOEA [None]
  - RASH GENERALISED [None]
  - THROAT TIGHTNESS [None]
  - TRACHEAL INFLAMMATION [None]
